FAERS Safety Report 6051068-0 (Version None)
Quarter: 2009Q1

REPORT INFORMATION
  Report Type: 
  Country: None (occurrence: None)
  Receive Date: 20090121
  Receipt Date: 20090116
  Transmission Date: 20090719
  Serious: Yes (Death)
  Sender: FDA-Public Use
  Company Number: CERZ-1000485

PATIENT
  Age: 6 Year
  Sex: Female
  Weight: 14.5 kg

DRUGS (3)
  1. CEREZYME [Suspect]
     Indication: GAUCHER'S DISEASE
     Dosage: 57 U/KG, Q2W, INTRAVENOUS
     Route: 042
     Dates: start: 20080917, end: 20090115
  2. CALTRATE (VITAMIN D NOS) [Concomitant]
  3. MULTIVITAMIN [Concomitant]

REACTIONS (2)
  - FALL [None]
  - SPLENIC RUPTURE [None]
